FAERS Safety Report 11812985 (Version 2)
Quarter: 2015Q4

REPORT INFORMATION
  Report Type: Report from Study
  Country: FI (occurrence: FI)
  Receive Date: 20151209
  Receipt Date: 20151214
  Transmission Date: 20160305
  Serious: Yes (Other)
  Sender: FDA-Public Use
  Company Number: FI-ROCHE-1672075

PATIENT
  Age: 67 Year
  Sex: Female
  Weight: 64.6 kg

DRUGS (49)
  1. OBINUTUZUMAB [Suspect]
     Active Substance: OBINUTUZUMAB
     Dosage: C2D1
     Route: 042
     Dates: start: 20141222, end: 20141222
  2. PARATABS [Concomitant]
     Route: 048
     Dates: start: 20141125, end: 20141125
  3. PARATABS [Concomitant]
     Route: 048
     Dates: start: 20141202, end: 20141202
  4. HISTEC [Concomitant]
     Route: 048
     Dates: start: 20150320, end: 20150320
  5. TAVANIC [Concomitant]
     Active Substance: LEVOFLOXACIN
     Route: 048
     Dates: start: 20141129, end: 20141202
  6. COTRIM D.S. [Concomitant]
     Active Substance: SULFAMETHOXAZOLE\TRIMETHOPRIM
     Dosage: 160/800 MG
     Route: 048
     Dates: start: 20141128, end: 20150613
  7. SOLU-MEDROL [Concomitant]
     Active Substance: METHYLPREDNISOLONE SODIUM SUCCINATE
     Route: 042
     Dates: start: 20150420, end: 20150420
  8. PARATABS [Concomitant]
     Route: 048
     Dates: start: 20141124, end: 20141124
  9. PARATABS [Concomitant]
     Route: 048
     Dates: start: 20150320, end: 20150320
  10. PERFALGAN [Concomitant]
     Active Substance: ACETAMINOPHEN
     Route: 042
     Dates: start: 20141124, end: 20141124
  11. TAZOCIN [Concomitant]
     Active Substance: PIPERACILLIN SODIUM\TAZOBACTAM SODIUM
     Route: 042
     Dates: start: 20141126, end: 20141129
  12. OBINUTUZUMAB [Suspect]
     Active Substance: OBINUTUZUMAB
     Indication: CHRONIC LYMPHOCYTIC LEUKAEMIA
     Dosage: C1D1, TEMPORARILY INTERRUPTED DUE TO INFUSION RELATED REACTION
     Route: 042
     Dates: start: 20141124, end: 20141124
  13. OBINUTUZUMAB [Suspect]
     Active Substance: OBINUTUZUMAB
     Dosage: C6D1
     Route: 042
     Dates: start: 20150518, end: 20150518
  14. HISTEC [Concomitant]
     Route: 048
     Dates: start: 20150420, end: 20150420
  15. PARATABS [Concomitant]
     Route: 048
     Dates: start: 20141209, end: 20141209
  16. HISTEC [Concomitant]
     Route: 048
     Dates: start: 20150213, end: 20150213
  17. ZYLORIC [Concomitant]
     Active Substance: ALLOPURINOL
     Route: 048
     Dates: start: 20141124, end: 20150320
  18. VALTREX [Concomitant]
     Active Substance: VALACYCLOVIR HYDROCHLORIDE
     Route: 048
     Dates: start: 20141128, end: 20150613
  19. SOLU-MEDROL [Concomitant]
     Active Substance: METHYLPREDNISOLONE SODIUM SUCCINATE
     Route: 042
     Dates: start: 20141125, end: 20141125
  20. PARATABS [Concomitant]
     Route: 048
     Dates: start: 20141222, end: 20141222
  21. PARATABS [Concomitant]
     Route: 048
     Dates: start: 20150420, end: 20150420
  22. TAVEGYL [Concomitant]
     Active Substance: CLEMASTINE FUMARATE
     Route: 042
     Dates: start: 20141124, end: 20141124
  23. SOMAC [Concomitant]
     Active Substance: PANTOPRAZOLE SODIUM
     Route: 042
     Dates: start: 20141124, end: 20141124
  24. OBINUTUZUMAB [Suspect]
     Active Substance: OBINUTUZUMAB
     Dosage: C1D2
     Route: 042
     Dates: start: 20141125, end: 20141125
  25. OBINUTUZUMAB [Suspect]
     Active Substance: OBINUTUZUMAB
     Dosage: C1D15
     Route: 042
     Dates: start: 20141209, end: 20141209
  26. OBINUTUZUMAB [Suspect]
     Active Substance: OBINUTUZUMAB
     Dosage: C3D1
     Route: 042
     Dates: start: 20150213, end: 20150213
  27. OBINUTUZUMAB [Suspect]
     Active Substance: OBINUTUZUMAB
     Dosage: C5D1
     Route: 042
     Dates: start: 20150420, end: 20150420
  28. FLUDARABINE [Suspect]
     Active Substance: FLUDARABINE PHOSPHATE
     Indication: CHRONIC LYMPHOCYTIC LEUKAEMIA
     Dosage: 3 CYCLES
     Route: 065
     Dates: start: 20021120, end: 20030304
  29. SOLU-MEDROL [Concomitant]
     Active Substance: METHYLPREDNISOLONE SODIUM SUCCINATE
     Route: 042
     Dates: start: 20141202, end: 20141202
  30. SOLU-MEDROL [Concomitant]
     Active Substance: METHYLPREDNISOLONE SODIUM SUCCINATE
     Route: 042
     Dates: start: 20150320, end: 20150320
  31. HISTEC [Concomitant]
     Route: 048
     Dates: start: 20141125, end: 20141125
  32. HISTEC [Concomitant]
     Route: 048
     Dates: start: 20150518, end: 20150518
  33. ZOFRAN [Concomitant]
     Active Substance: ONDANSETRON HYDROCHLORIDE
     Route: 048
     Dates: start: 20141125, end: 20141125
  34. FLUDARABINE [Suspect]
     Active Substance: FLUDARABINE PHOSPHATE
     Dosage: 6 CYCLES
     Route: 065
     Dates: start: 20100322, end: 20101115
  35. SOLU-MEDROL [Concomitant]
     Active Substance: METHYLPREDNISOLONE SODIUM SUCCINATE
     Route: 042
     Dates: start: 20141124, end: 20141124
  36. SOLU-MEDROL [Concomitant]
     Active Substance: METHYLPREDNISOLONE SODIUM SUCCINATE
     Route: 042
     Dates: start: 20141222, end: 20141222
  37. SOLU-MEDROL [Concomitant]
     Active Substance: METHYLPREDNISOLONE SODIUM SUCCINATE
     Route: 042
     Dates: start: 20150518, end: 20150518
  38. PARATABS [Concomitant]
     Route: 048
     Dates: start: 20150213, end: 20150213
  39. OBINUTUZUMAB [Suspect]
     Active Substance: OBINUTUZUMAB
     Dosage: C1D8
     Route: 042
     Dates: start: 20141202, end: 20141202
  40. OBINUTUZUMAB [Suspect]
     Active Substance: OBINUTUZUMAB
     Dosage: C4D1
     Route: 042
     Dates: start: 20150320, end: 20150320
  41. SOLU-MEDROL [Concomitant]
     Active Substance: METHYLPREDNISOLONE SODIUM SUCCINATE
     Route: 042
     Dates: start: 20141209, end: 20141209
  42. SOLU-MEDROL [Concomitant]
     Active Substance: METHYLPREDNISOLONE SODIUM SUCCINATE
     Route: 042
     Dates: start: 20150213, end: 20150213
  43. PARATABS [Concomitant]
     Route: 048
     Dates: start: 20150518, end: 20150518
  44. ONDANSETRON [Concomitant]
     Active Substance: ONDANSETRON
     Route: 042
     Dates: start: 20141124, end: 20141124
  45. PANADOL (FINLAND) [Concomitant]
     Route: 048
     Dates: start: 20141124, end: 20141124
  46. PERFALGAN [Concomitant]
     Active Substance: ACETAMINOPHEN
     Route: 042
     Dates: start: 20141126, end: 20141128
  47. HISTEC [Concomitant]
     Route: 048
     Dates: start: 20141202, end: 20141202
  48. HISTEC [Concomitant]
     Route: 048
     Dates: start: 20141209, end: 20141209
  49. HISTEC [Concomitant]
     Route: 048
     Dates: start: 20141222, end: 20141222

REACTIONS (1)
  - Optic nerve disorder [Not Recovered/Not Resolved]

NARRATIVE: CASE EVENT DATE: 20151013
